FAERS Safety Report 20938930 (Version 1)
Quarter: 2022Q2

REPORT INFORMATION
  Report Type: Spontaneous
  Country: PT (occurrence: PT)
  Receive Date: 20220609
  Receipt Date: 20220609
  Transmission Date: 20220721
  Serious: Yes (Other)
  Sender: FDA-Public Use
  Company Number: PT-SLATE RUN PHARMACEUTICALS-22PT001122

PATIENT

DRUGS (4)
  1. VORICONAZOLE [Suspect]
     Active Substance: VORICONAZOLE
     Indication: Aspergillus infection
     Dosage: UNK
  2. VANCOMYCIN HYDROCHLORIDE [Suspect]
     Active Substance: VANCOMYCIN HYDROCHLORIDE
     Indication: Superinfection
     Dosage: UNK
  3. AMPHOTERICIN B [Suspect]
     Active Substance: AMPHOTERICIN B
     Indication: Aspergillus infection
     Dosage: UNK
  4. PIPERACILLIN AND TAZOBACTAM [Suspect]
     Active Substance: PIPERACILLIN SODIUM\TAZOBACTAM SODIUM
     Indication: Superinfection
     Dosage: UNK

REACTIONS (10)
  - Treatment failure [Unknown]
  - Pulmonary mass [Recovering/Resolving]
  - Superinfection [Unknown]
  - Bronchopulmonary aspergillosis allergic [Unknown]
  - Bronchopulmonary aspergillosis [Unknown]
  - Eosinophilic granulomatosis with polyangiitis [Recovering/Resolving]
  - Inflammation [Unknown]
  - Drug-induced liver injury [Unknown]
  - Anaemia [Recovered/Resolved]
  - Sinusitis [Unknown]
